FAERS Safety Report 10649019 (Version 1)
Quarter: 2014Q4

REPORT INFORMATION
  Report Type: Spontaneous
  Country: IT (occurrence: None)
  Receive Date: 20141210
  Receipt Date: 20141210
  Transmission Date: 20150529
  Serious: Yes (Other)
  Sender: FDA-Public Use
  Company Number: 2656214

PATIENT
  Age: 41 Year
  Sex: Female
  Weight: 120 kg

DRUGS (2)
  1. HERCEPTIN [Concomitant]
     Active Substance: TRASTUZUMAB
  2. DOCETAXEL. [Suspect]
     Active Substance: DOCETAXEL
     Indication: BREAST CANCER
     Dosage: 150 MG MILLIGRAM(S), TOTAL, INTRAVENOUS (NOT OTHERWISE SPECIFIED)
     Route: 042
     Dates: start: 20141125, end: 20141125

REACTIONS (2)
  - Hyperaemia [None]
  - Throat tightness [None]

NARRATIVE: CASE EVENT DATE: 20141125
